FAERS Safety Report 14479791 (Version 2)
Quarter: 2018Q1

REPORT INFORMATION
  Report Type: Spontaneous
  Country: US (occurrence: US)
  Receive Date: 20180202
  Receipt Date: 20180216
  Transmission Date: 20180509
  Serious: No
  Sender: FDA-Public Use
  Company Number: US-HORIZON-PRE-0039-2018

PATIENT
  Sex: Male

DRUGS (1)
  1. RAYOS [Suspect]
     Active Substance: PREDNISONE
     Indication: POLYMYALGIA RHEUMATICA
     Dosage: 7 MG NIGHTLY AT 10 PM
     Dates: start: 201703

REACTIONS (2)
  - Mastication disorder [Unknown]
  - Vomiting [Unknown]
